FAERS Safety Report 17846146 (Version 4)
Quarter: 2020Q2

REPORT INFORMATION
  Report Type: Spontaneous
  Country: DE (occurrence: DE)
  Receive Date: 20200601
  Receipt Date: 20200605
  Transmission Date: 20200714
  Serious: Yes (Life-Threatening, Hospitalization, Other)
  Sender: FDA-Public Use
  Company Number: NVSC2020DE082393

PATIENT
  Age: 55 Year
  Sex: Male
  Weight: 93 kg

DRUGS (25)
  1. CLINDAMYCIN. [Suspect]
     Active Substance: CLINDAMYCIN
     Indication: WOUND INFECTION STAPHYLOCOCCAL
     Dosage: 600 MG (1-1-1)
     Route: 048
  2. METAMIZOLE [Interacting]
     Active Substance: METAMIZOLE
     Indication: PAIN
     Dosage: 500 MG (DOSE: 2-2-2-2)
     Route: 048
  3. SITAGLIPTIN [Concomitant]
     Active Substance: SITAGLIPTIN
     Indication: TYPE 2 DIABETES MELLITUS
     Dosage: DOSE: 1-0-0-0
     Route: 048
  4. INHALERIN [Concomitant]
     Indication: PRODUCT USED FOR UNKNOWN INDICATION
     Dosage: UNK
     Route: 065
  5. DOXAZOSIN [Concomitant]
     Active Substance: DOXAZOSIN MESYLATE
     Indication: HYPERTENSION
     Dosage: 4 MG, BID, DOSE: 1-0-1-0
     Route: 048
  6. PREGABALIN. [Concomitant]
     Active Substance: PREGABALIN
     Indication: PRODUCT USED FOR UNKNOWN INDICATION
     Dosage: 50 MG, BID, DOSE: 1-0-1-0
     Route: 048
  7. GLYCOPYRRONIUM [Concomitant]
     Active Substance: GLYCOPYRRONIUM
     Indication: CHRONIC OBSTRUCTIVE PULMONARY DISEASE
     Dosage: 43 MG, BID, 43 MG (1-0-1)
     Route: 065
  8. ACETYLSALICYLIC ACID [Interacting]
     Active Substance: ASPIRIN
     Indication: THROMBOSIS PROPHYLAXIS
     Dosage: 100 MG, QD (1-0-0-0)
     Route: 048
  9. CLINDAMYCIN. [Interacting]
     Active Substance: CLINDAMYCIN
     Dosage: DAILY DOSE: 1800 MG MILLGRAM(S) EVERY DAYS
     Route: 048
  10. OXYCODONE [Concomitant]
     Active Substance: OXYCODONE
     Indication: PAIN
     Dosage: 10 MG (1-0-1)
     Route: 048
  11. RAMIPRIL. [Concomitant]
     Active Substance: RAMIPRIL
     Indication: HYPERTENSION
     Dosage: DOSE: 1-0-0-0
     Route: 048
  12. PHENPROCOUMON [Interacting]
     Active Substance: PHENPROCOUMON
     Indication: THROMBOSIS PROPHYLAXIS
     Dosage: DAILY DOSE: 3 MG MILLGRAM(S) EVERY WEEKS, 7 TABLETS
     Route: 048
  13. NALOXONE [Concomitant]
     Active Substance: NALOXONE
     Indication: PAIN
     Dosage: 5 MG (1-0-1)
     Route: 048
  14. METOPROLOL. [Concomitant]
     Active Substance: METOPROLOL
     Dosage: DOSE: 1-0-1-0
     Route: 048
  15. PHENPROCOUMON [Interacting]
     Active Substance: PHENPROCOUMON
     Indication: THROMBOSIS PROPHYLAXIS
     Dosage: 3 MG (WEEKLY 7 TABLETS)
     Route: 048
  16. ATORVASTATIN [Concomitant]
     Active Substance: ATORVASTATIN
     Indication: HYPERLIPIDAEMIA
     Dosage: DOSE: 0-0-1-0
     Route: 048
  17. PREGABALIN. [Concomitant]
     Active Substance: PREGABALIN
     Dosage: DOSE: 1-0-1-0
     Route: 048
  18. METOPROLOL. [Concomitant]
     Active Substance: METOPROLOL
     Indication: HYPERTENSION
     Dosage: 47.5 MG, BID, DOSE: 1-0-1-0
     Route: 048
  19. DOXAZOSIN [Concomitant]
     Active Substance: DOXAZOSIN MESYLATE
     Dosage: DOSE: 1-0-1-0
     Route: 048
  20. METFORMIN [Concomitant]
     Active Substance: METFORMIN HYDROCHLORIDE
     Dosage: DOSE: 1-0-1-0
     Route: 048
  21. AMLODIPINE [Concomitant]
     Active Substance: AMLODIPINE BESYLATE
     Indication: HYPERTENSION
     Dosage: DOSE: 1-0-0-0
     Route: 048
  22. METFORMIN [Concomitant]
     Active Substance: METFORMIN HYDROCHLORIDE
     Indication: TYPE 2 DIABETES MELLITUS
     Dosage: DOSE: 1-0-1-01000 MG, BID
     Route: 048
  23. INHALERIN [Concomitant]
     Route: 065
  24. INDACATEROL [Concomitant]
     Active Substance: INDACATEROL
     Indication: CHRONIC OBSTRUCTIVE PULMONARY DISEASE
     Dosage: 85 MG, BID, DOSE: 1-0-1)
     Route: 050
  25. DIPYRONE [Interacting]
     Active Substance: DIPYRONE
     Indication: PRODUCT USED FOR UNKNOWN INDICATION
     Dosage: DOSE: 2-2-2-2
     Route: 048

REACTIONS (6)
  - International normalised ratio increased [Recovered/Resolved]
  - Drug interaction [Recovering/Resolving]
  - Labelled drug-drug interaction medication error [Unknown]
  - Inhibitory drug interaction [Unknown]
  - Potentiating drug interaction [Recovering/Resolving]
  - Epistaxis [Recovering/Resolving]
